FAERS Safety Report 20677109 (Version 1)
Quarter: 2022Q2

REPORT INFORMATION
  Report Type: Report from Study
  Country: US (occurrence: US)
  Receive Date: 20220406
  Receipt Date: 20220406
  Transmission Date: 20220721
  Serious: Yes (Other)
  Sender: FDA-Public Use
  Company Number: US-GILEAD-2022-0576278

PATIENT
  Sex: Male

DRUGS (29)
  1. AZTREONAM LYSINE [Suspect]
     Active Substance: AZTREONAM LYSINE
     Indication: Product used for unknown indication
     Dosage: 75 MG, TID,28/28
     Route: 055
  2. DOXEPIN [Concomitant]
     Active Substance: DOXEPIN
  3. AMLODIPINE BESYLATE [Concomitant]
     Active Substance: AMLODIPINE BESYLATE
  4. BENZONATATE [Concomitant]
     Active Substance: BENZONATATE
  5. FINASTERIDE [Concomitant]
     Active Substance: FINASTERIDE
  6. HYDROCORTISONE [Concomitant]
     Active Substance: HYDROCORTISONE
  7. DICLOFENAC [Concomitant]
     Active Substance: DICLOFENAC
  8. ALFUZOSIN [Concomitant]
     Active Substance: ALFUZOSIN
  9. DIVALPROEX SODIUM [Concomitant]
     Active Substance: DIVALPROEX SODIUM
  10. OMEPRAZOLE [Concomitant]
     Active Substance: OMEPRAZOLE
  11. ONDANSETRON HYDROCHLORIDE [Concomitant]
     Active Substance: ONDANSETRON HYDROCHLORIDE
  12. SINEMET [Concomitant]
     Active Substance: CARBIDOPA\LEVODOPA
  13. SINGULAIR [Concomitant]
     Active Substance: MONTELUKAST SODIUM
  14. CREON [Concomitant]
     Active Substance: PANCRELIPASE AMYLASE\PANCRELIPASE LIPASE\PANCRELIPASE PROTEASE
  15. ZOLPIDEM TARTRATE [Concomitant]
     Active Substance: ZOLPIDEM TARTRATE
  16. ZITHROMAX [Concomitant]
     Active Substance: AZITHROMYCIN DIHYDRATE
  17. SYNTHROID [Concomitant]
     Active Substance: LEVOTHYROXINE SODIUM
  18. ISOSORBIDE DINITRATE [Concomitant]
     Active Substance: ISOSORBIDE DINITRATE
  19. ALBUTEROL [Concomitant]
     Active Substance: ALBUTEROL
  20. TYLENOL [Concomitant]
     Active Substance: ACETAMINOPHEN
  21. FLUTICASONE [Concomitant]
     Active Substance: FLUTICASONE
  22. ASPIRIN [Concomitant]
     Active Substance: ASPIRIN
  23. MIRALAX [Concomitant]
     Active Substance: POLYETHYLENE GLYCOL 3350
  24. KRILL OIL [Concomitant]
     Active Substance: DIETARY SUPPLEMENT\KRILL OIL
  25. CALCIUM [Concomitant]
     Active Substance: CALCIUM
  26. GABAPENTIN [Concomitant]
     Active Substance: GABAPENTIN
  27. PULMOZYME [Concomitant]
     Active Substance: DORNASE ALFA
  28. MVW COMPLETE FORMULATION CHEWABLES [Concomitant]
  29. PROAIR HFA [Concomitant]
     Active Substance: ALBUTEROL SULFATE

REACTIONS (1)
  - Cystic fibrosis [Unknown]
